FAERS Safety Report 17134771 (Version 10)
Quarter: 2020Q2

REPORT INFORMATION
  Report Type: Report from Study
  Country: JP (occurrence: JP)
  Receive Date: 20191210
  Receipt Date: 20200522
  Transmission Date: 20200713
  Serious: Yes (Hospitalization)
  Sender: FDA-Public Use
  Company Number: JP-EISAI MEDICAL RESEARCH-EC-2019-066677

PATIENT
  Age: 60 Year
  Sex: Male
  Weight: 51.7 kg

DRUGS (10)
  1. NAIXAN [Concomitant]
     Active Substance: NAPROXEN SODIUM
     Dates: start: 20191115, end: 20200120
  2. PEMBROLIZUMAB. [Suspect]
     Active Substance: PEMBROLIZUMAB
     Route: 041
     Dates: start: 20191127
  3. CALONAL [Concomitant]
     Active Substance: ACETAMINOPHEN
     Dates: start: 20191109, end: 20191114
  4. LOXOPROFEN SODIUM [Concomitant]
     Active Substance: LOXOPROFEN SODIUM
     Dates: start: 20190927
  5. LUNESTA [Concomitant]
     Active Substance: ESZOPICLONE
     Dates: start: 20190927, end: 20191208
  6. NICHICODE [Concomitant]
     Active Substance: CHLORPHENIRAMINE\DIHYDROCODEINE\METHYLEPHEDRINE
     Dates: start: 20190927, end: 20191113
  7. RABEPRAZOLE SODIUM. [Concomitant]
     Active Substance: RABEPRAZOLE SODIUM
     Dates: start: 20191115
  8. PEMBROLIZUMAB. [Suspect]
     Active Substance: PEMBROLIZUMAB
     Indication: NON-SMALL CELL LUNG CANCER METASTATIC
     Route: 041
     Dates: start: 20191108, end: 20191108
  9. CODEINE PHOSPHATE [Concomitant]
     Active Substance: CODEINE PHOSPHATE
     Dates: start: 20191112
  10. LENVATINIB [Suspect]
     Active Substance: LENVATINIB
     Indication: NON-SMALL CELL LUNG CANCER METASTATIC
     Route: 048
     Dates: start: 20191108

REACTIONS (1)
  - Peripheral sensory neuropathy [Recovered/Resolved]

NARRATIVE: CASE EVENT DATE: 20191118
